FAERS Safety Report 4530258-X (Version None)
Quarter: 2004Q4

REPORT INFORMATION
  Report Type: 
  Country: None (occurrence: None)
  Receive Date: 20041217
  Receipt Date: 20041207
  Transmission Date: 20050328
  Serious: Yes (Other)
  Sender: FDA-Public Use
  Company Number: PHEH2004US13032

PATIENT
  Age: 68 Year
  Sex: Female

DRUGS (5)
  1. LOTREL [Suspect]
     Indication: HYPERTENSION
     Dosage: 5 MG AMLOD/20 MG BENAZ QD
     Dates: start: 19970101
  2. PRAVACHOL [Concomitant]
  3. BEXTRA [Concomitant]
  4. MICRO-K [Concomitant]
  5. MONOPRIL [Concomitant]

REACTIONS (7)
  - ABDOMINAL PAIN [None]
  - ABDOMINAL PAIN UPPER [None]
  - ALOPECIA [None]
  - CHOLECYSTECTOMY [None]
  - CONSTIPATION [None]
  - GALLBLADDER OPERATION [None]
  - VOMITING [None]
